FAERS Safety Report 7617827-5 (Version None)
Quarter: 2011Q3

REPORT INFORMATION
  Report Type: 
  Country: None (occurrence: None)
  Receive Date: 20110718
  Receipt Date: 20110714
  Transmission Date: 20111222
  Serious: Yes (Death)
  Sender: FDA-Public Use
  Company Number: US-B.I. PHARMACEUTICALS,INC./RIDGEFIELD-2011-BP-08224BP

PATIENT
  Sex: Female
  Weight: 42.18 kg

DRUGS (6)
  1. PRADAXA [Suspect]
     Indication: ATRIAL FIBRILLATION
     Dosage: 300 MG
     Route: 048
     Dates: start: 20110107
  2. CYANOCOBALAMIN [Concomitant]
     Dates: start: 20110119
  3. LOTENSIN [Concomitant]
     Dosage: 40 MG
     Dates: start: 20050829
  4. MULTI-VITAMINS [Concomitant]
     Dates: start: 20060712
  5. AMLODIPINE BESYLATE [Concomitant]
     Dosage: 10 MG
     Dates: start: 20091028
  6. PRADAXA [Suspect]
     Indication: ATRIAL FLUTTER

REACTIONS (1)
  - DEATH [None]
